FAERS Safety Report 16324816 (Version 2)
Quarter: 2019Q3

REPORT INFORMATION
  Report Type: Spontaneous
  Country: US (occurrence: US)
  Receive Date: 20190517
  Receipt Date: 20190718
  Transmission Date: 20191004
  Serious: Yes (Death)
  Sender: FDA-Public Use
  Company Number: US-TEVA-2019-US-1050928

PATIENT
  Age: 54 Year
  Sex: Female

DRUGS (6)
  1. SCOPOLAMINE PATCH [Concomitant]
     Active Substance: SCOPOLAMINE
  2. ERGOCALCIFEROL. [Concomitant]
     Active Substance: ERGOCALCIFEROL
  3. RISPERIDONE. [Concomitant]
     Active Substance: RISPERIDONE
  4. AUSTEDO [Suspect]
     Active Substance: DEUTETRABENAZINE
     Dosage: 36 MILLIGRAM DAILY;
     Route: 048
     Dates: start: 201704
  5. DIVALPROEX [Concomitant]
     Active Substance: DIVALPROEX SODIUM
  6. CLONAZEPAM. [Concomitant]
     Active Substance: CLONAZEPAM

REACTIONS (1)
  - Death [Fatal]

NARRATIVE: CASE EVENT DATE: 20190430
